FAERS Safety Report 12062753 (Version 1)
Quarter: 2016Q1

REPORT INFORMATION
  Report Type: Spontaneous
  Country: US (occurrence: US)
  Receive Date: 20160210
  Receipt Date: 20160210
  Transmission Date: 20160526
  Serious: No
  Sender: FDA-Public Use
  Company Number: US-BAYER-2016-024166

PATIENT
  Age: 80 Year
  Sex: Female
  Weight: 56.69 kg

DRUGS (1)
  1. CHLOR-TRIMETON 4HOUR [Suspect]
     Active Substance: CHLORPHENIRAMINE MALEATE
     Indication: SEASONAL ALLERGY
     Dosage: 1 DF, QID (EVERY 6 HOURS)
     Route: 048

REACTIONS (1)
  - Blood pressure increased [None]
